FAERS Safety Report 16033176 (Version 3)
Quarter: 2019Q2

REPORT INFORMATION
  Report Type: Spontaneous
  Country: BE (occurrence: BE)
  Receive Date: 20190305
  Receipt Date: 20190509
  Transmission Date: 20190711
  Serious: Yes (Disabling, Other)
  Sender: FDA-Public Use
  Company Number: BE-AMGEN-BELSP2019030767

PATIENT
  Age: 75 Year
  Sex: Female
  Weight: 60.5 kg

DRUGS (4)
  1. PANTOPRAZOLE [Concomitant]
     Active Substance: PANTOPRAZOLE
     Dosage: 20 MILLIGRAM, QD, 1
  2. OXYCODON [Concomitant]
     Active Substance: OXYCODONE
     Dosage: 5 MILLIGRAM, QD, 2
  3. PROLIA [Suspect]
     Active Substance: DENOSUMAB
     Indication: PRODUCT USED FOR UNKNOWN INDICATION
     Dosage: UNK
     Route: 065
     Dates: start: 2012, end: 20160803
  4. DICLOFENAC [Concomitant]
     Active Substance: DICLOFENAC
     Dosage: 75 MILLIGRAM, QD,2

REACTIONS (2)
  - Jaw fistula [Unknown]
  - Pain in jaw [Unknown]

NARRATIVE: CASE EVENT DATE: 20160616
